FAERS Safety Report 16587284 (Version 1)
Quarter: 2019Q3

REPORT INFORMATION
  Report Type: Spontaneous
  Country: RO (occurrence: RO)
  Receive Date: 20190717
  Receipt Date: 20190717
  Transmission Date: 20191004
  Serious: Yes (Other)
  Sender: FDA-Public Use
  Company Number: RO-JNJFOC-20190708004

PATIENT

DRUGS (3)
  1. RISPOLEPT [Suspect]
     Active Substance: RISPERIDONE
     Indication: DEPRESSION
     Route: 064
  2. RISPOLEPT [Suspect]
     Active Substance: RISPERIDONE
     Route: 064
  3. HALOPERIDOL. [Suspect]
     Active Substance: HALOPERIDOL
     Indication: DEPRESSION
     Route: 064

REACTIONS (2)
  - Premature baby [Recovered/Resolved]
  - Foetal exposure during pregnancy [Recovered/Resolved]
